FAERS Safety Report 17984944 (Version 1)
Quarter: 2020Q3

REPORT INFORMATION
  Report Type: Spontaneous
  Country: IN (occurrence: IN)
  Receive Date: 20200706
  Receipt Date: 20200706
  Transmission Date: 20201103
  Serious: Yes (Death)
  Sender: FDA-Public Use
  Company Number: NVSC2020IN189589

PATIENT
  Sex: Female

DRUGS (1)
  1. KRYXANA [Suspect]
     Active Substance: RIBOCICLIB
     Indication: BREAST CANCER
     Dosage: 600 MG, QD
     Route: 048
     Dates: start: 20200623

REACTIONS (1)
  - Hypertension [Fatal]

NARRATIVE: CASE EVENT DATE: 20200624
